FAERS Safety Report 7757454-2 (Version None)
Quarter: 2011Q3

REPORT INFORMATION
  Report Type: 
  Country: None (occurrence: None)
  Receive Date: 20110916
  Receipt Date: 20110912
  Transmission Date: 20111222
  Serious: Yes (Other)
  Sender: FDA-Public Use
  Company Number: US-ABBOTT-11P-163-0854102-00

PATIENT
  Sex: Female
  Weight: 57.204 kg

DRUGS (3)
  1. HUMIRA [Suspect]
     Indication: RHEUMATOID ARTHRITIS
     Dates: start: 20060101
  2. HYDROCODONE BITARTRATE AND ACETAMINOPHEN [Suspect]
     Indication: BACK PAIN
     Dates: start: 20110201, end: 20110201
  3. RELAFEN [Concomitant]
     Indication: RHEUMATOID ARTHRITIS

REACTIONS (9)
  - MALAISE [None]
  - WEIGHT DECREASED [None]
  - BACK PAIN [None]
  - INTERVERTEBRAL DISC DISORDER [None]
  - JOINT SWELLING [None]
  - ARTHRALGIA [None]
  - NAUSEA [None]
  - RHEUMATOID ARTHRITIS [None]
  - DECREASED APPETITE [None]
